FAERS Safety Report 4919132-4 (Version None)
Quarter: 2006Q1

REPORT INFORMATION
  Report Type: 
  Country: None (occurrence: None)
  Receive Date: 20060216
  Receipt Date: 20060207
  Transmission Date: 20060701
  Serious: Yes (Disabling, Other)
  Sender: FDA-Public Use
  Company Number: 2006019749

PATIENT
  Age: 51 Year
  Sex: Female
  Weight: 58.9676 kg

DRUGS (9)
  1. XANAX [Suspect]
     Indication: EMOTIONAL DISORDER
     Dosage: 4 IN 1 D
  2. LIPITOR [Suspect]
     Indication: BLOOD CHOLESTEROL INCREASED
     Dosage: 60 MG (1 IN 1 D)
  3. CELEBREX [Suspect]
     Indication: OSTEOARTHRITIS
     Dosage: 200 MG (200 MG, 1 IN 1D)
  4. NITROGLYCERIN [Suspect]
     Indication: OESOPHAGEAL DISORDER
     Dosage: AS NEEDED
     Dates: start: 20030101
  5. IBUPROFEN [Suspect]
     Indication: OSTEOARTHRITIS
     Dosage: 1600 MG
  6. WELLBUTRIN [Concomitant]
  7. PROVIGIL [Concomitant]
  8. SYNTHROID [Concomitant]
  9. TRAZODONE HCL [Concomitant]

REACTIONS (16)
  - BLOOD CHOLESTEROL INCREASED [None]
  - CRUSH INJURY [None]
  - DRUG INEFFECTIVE [None]
  - EATING DISORDER [None]
  - GASTRIC ULCER HAEMORRHAGE [None]
  - INFLAMMATION [None]
  - JOINT INJURY [None]
  - LOSS OF CONSCIOUSNESS [None]
  - MENTAL DISORDER [None]
  - MOVEMENT DISORDER [None]
  - NAUSEA [None]
  - NERVOUSNESS [None]
  - OESOPHAGEAL DISORDER [None]
  - OSTEOARTHRITIS [None]
  - THINKING ABNORMAL [None]
  - WEIGHT DECREASED [None]
